FAERS Safety Report 21934642 (Version 1)
Quarter: 2023Q1

REPORT INFORMATION
  Report Type: Spontaneous
  Country: IN (occurrence: IN)
  Receive Date: 20230201
  Receipt Date: 20230201
  Transmission Date: 20230417
  Serious: Yes (Other)
  Sender: FDA-Public Use
  Company Number: IN-MACLEODS PHARMACEUTICALS US LTD-MAC2023039497

PATIENT

DRUGS (5)
  1. LEVOTHYROXINE [Suspect]
     Active Substance: LEVOTHYROXINE
     Indication: Product used for unknown indication
     Dosage: UNK (SUPPRESSIVE DOSES)
     Route: 065
  2. Iodine (131I) [Concomitant]
     Indication: Follicular thyroid cancer
     Dosage: UNK (192 MCI)
     Route: 065
  3. Iodine (131I) [Concomitant]
     Indication: Metastases to bone
     Dosage: UNK (170 MCI)
     Route: 065
  4. Iodine (131I) [Concomitant]
     Indication: Metastases to lung
  5. Iodine (131I) [Concomitant]
     Indication: Metastases to kidney

REACTIONS (1)
  - Hyperthyroidism [Recovered/Resolved]
